FAERS Safety Report 9834639 (Version 1)
Quarter: 2014Q1

REPORT INFORMATION
  Report Type: Spontaneous
  Country: IT (occurrence: IT)
  Receive Date: 20140122
  Receipt Date: 20140122
  Transmission Date: 20141002
  Serious: Yes (Other)
  Sender: FDA-Public Use
  Company Number: IT-JNJFOC-20140110999

PATIENT
  Age: 72 Year
  Sex: Female
  Weight: 97 kg

DRUGS (2)
  1. CAELYX [Suspect]
     Indication: BREAST CANCER
     Route: 042
     Dates: start: 20140114, end: 20140114
  2. GRANISETRON [Concomitant]
     Indication: PREMEDICATION
     Route: 042
     Dates: start: 20140114, end: 20140114

REACTIONS (3)
  - Generalised erythema [Recovered/Resolved]
  - Abdominal pain [Recovered/Resolved]
  - Pruritus [Recovered/Resolved]
